FAERS Safety Report 6959432-X (Version None)
Quarter: 2010Q3

REPORT INFORMATION
  Report Type: 
  Country: None (occurrence: None)
  Receive Date: 20100831
  Receipt Date: 20100826
  Transmission Date: 20110219
  Serious: Yes (Hospitalization)
  Sender: FDA-Public Use
  Company Number: US-AMGEN-KDL416652

PATIENT
  Sex: Female

DRUGS (1)
  1. ENBREL [Suspect]
     Indication: RHEUMATOID ARTHRITIS
     Route: 058
     Dates: start: 20041001

REACTIONS (6)
  - BACTERIAL INFECTION [None]
  - BREAST MASS [None]
  - FUNGAL INFECTION [None]
  - INCISION SITE INFECTION [None]
  - RETCHING [None]
  - RHEUMATOID ARTHRITIS [None]
